FAERS Safety Report 5991939-4 (Version None)
Quarter: 2008Q4

REPORT INFORMATION
  Report Type: 
  Country: None (occurrence: None)
  Receive Date: 20081211
  Receipt Date: 20081117
  Transmission Date: 20090506
  Serious: Yes (Death)
  Sender: FDA-Public Use
  Company Number: US-ABBOTT-08P-163-0491987-00

PATIENT
  Age: 29 Year
  Sex: Male

DRUGS (4)
  1. RITONAVIR [Suspect]
     Indication: ANTIRETROVIRAL THERAPY
  2. ATAZANAVIR SULFATE [Suspect]
     Indication: ANTIRETROVIRAL THERAPY
  3. EMTRICITABINE [Suspect]
     Indication: ANTIRETROVIRAL THERAPY
  4. TENOFOVIR DISOPROXIL FUMARATE [Suspect]
     Indication: ANTIRETROVIRAL THERAPY

REACTIONS (3)
  - IMMUNE RECONSTITUTION SYNDROME [None]
  - MYOCARDITIS [None]
  - VENTRICULAR FIBRILLATION [None]
